FAERS Safety Report 5913436-4 (Version None)
Quarter: 2008Q4

REPORT INFORMATION
  Report Type: 
  Country: None (occurrence: None)
  Receive Date: 20081008
  Receipt Date: 20081008
  Transmission Date: 20090506
  Serious: Yes (Death, Hospitalization)
  Sender: FDA-Public Use
  Company Number: None

PATIENT
  Sex: Female
  Weight: 3.37 kg

DRUGS (8)
  1. CYCLOPHOSPHAMIDE [Suspect]
     Dosage: 200 MG
     Dates: end: 20080912
  2. CYTARABINE [Suspect]
     Dosage: 45 MG
     Dates: end: 20080923
  3. DAUNORUBICIN HCL [Suspect]
     Dosage: 2.6 MG
     Dates: end: 20080910
  4. HYDROCORTISONE [Suspect]
     Dosage: 22.5 MG
     Dates: end: 20080923
  5. METHOTREXATE [Suspect]
     Dosage: 22.5 MG
     Dates: end: 20080923
  6. METHYLPREDNISOLONE 16MG TAB [Suspect]
     Dosage: 116.6 MG
     Dates: end: 20080927
  7. PREDNISONE TAB [Suspect]
     Dosage: 24.5 MG
     Dates: end: 20080922
  8. VINCRISTINE SULFATE [Suspect]
     Dosage: .08 MG
     Dates: end: 20080909

REACTIONS (7)
  - BRAIN MASS [None]
  - FUNGAL INFECTION [None]
  - HEPATIC ENZYME INCREASED [None]
  - HYPERBILIRUBINAEMIA [None]
  - LIVER DISORDER [None]
  - REFUSAL OF TREATMENT BY RELATIVE [None]
  - SINUSITIS FUNGAL [None]
